FAERS Safety Report 8967725 (Version 1)
Quarter: 2012Q4

REPORT INFORMATION
  Report Type: Spontaneous
  Country: US (occurrence: None)
  Receive Date: 20121213
  Receipt Date: 20121213
  Transmission Date: 20130627
  Serious: No
  Sender: FDA-Public Use
  Company Number: None

PATIENT
  Age: 59 Year
  Sex: Male
  Weight: 78.3 kg

DRUGS (1)
  1. PACLITAXEL [Suspect]
     Dates: start: 20120816, end: 20120816

REACTIONS (3)
  - Dyspnoea [None]
  - Flushing [None]
  - Infusion related reaction [None]
